FAERS Safety Report 21615561 (Version 1)
Quarter: 2022Q4

REPORT INFORMATION
  Report Type: Report from Study
  Country: IT (occurrence: IT)
  Receive Date: 20221118
  Receipt Date: 20221118
  Transmission Date: 20230112
  Serious: Yes (Other)
  Sender: FDA-Public Use
  Company Number: IT-MYLANLABS-2022M1130054

PATIENT
  Age: 23 Year
  Sex: Female

DRUGS (2)
  1. EPIRUBICIN [Suspect]
     Active Substance: EPIRUBICIN
     Indication: Metastases to liver
     Dosage: 50 MILLIGRAM (DRUG-ELUTING BEADS)
     Route: 013
  2. EPIRUBICIN [Suspect]
     Active Substance: EPIRUBICIN
     Indication: Medullary thyroid cancer

REACTIONS (2)
  - Disease progression [Unknown]
  - Drug ineffective [Unknown]
